FAERS Safety Report 17781520 (Version 1)
Quarter: 2020Q2

REPORT INFORMATION
  Report Type: Spontaneous
  Country: US (occurrence: US)
  Receive Date: 20200514
  Receipt Date: 20200514
  Transmission Date: 20200714
  Serious: No
  Sender: FDA-Public Use
  Company Number: US-BION-008199

PATIENT
  Age: 45 Year
  Sex: Male
  Weight: 113.4 kg

DRUGS (1)
  1. EQUATE IBUPROFEN [Suspect]
     Active Substance: IBUPROFEN
     Indication: ANALGESIC THERAPY
     Dosage: STRENGTH: 200 MG?TOOK 2 SOFTGELS ONCE AFTER HAVING BREAKFAST
     Route: 048
     Dates: start: 20190814, end: 20190814

REACTIONS (4)
  - Product odour abnormal [Unknown]
  - Abdominal pain upper [Unknown]
  - Nausea [Unknown]
  - Diarrhoea [Unknown]

NARRATIVE: CASE EVENT DATE: 20190814
